FAERS Safety Report 5474543-6 (Version None)
Quarter: 2007Q3

REPORT INFORMATION
  Report Type: 
  Country: None (occurrence: None)
  Receive Date: 20070928
  Receipt Date: 20070921
  Transmission Date: 20080115
  Serious: Yes (Life-Threatening, Hospitalization, Disabling, Other)
  Sender: FDA-Public Use
  Company Number: 128-20785-07091343

PATIENT
  Age: 66 Year

DRUGS (1)
  1. THALIDOMIDE [Suspect]
     Indication: MULTIPLE MYELOMA
     Dosage: 400 MG, 8 IN 1 D, ORAL
     Route: 048
     Dates: start: 20070912, end: 20070101

REACTIONS (5)
  - ACUTE RESPIRATORY FAILURE [None]
  - HAEMOGLOBIN DECREASED [None]
  - PLATELET COUNT DECREASED [None]
  - PNEUMONIA [None]
  - SEPTIC SHOCK [None]
